FAERS Safety Report 24078787 (Version 1)
Quarter: 2024Q3

REPORT INFORMATION
  Report Type: Spontaneous
  Country: US (occurrence: US)
  Receive Date: 20240711
  Receipt Date: 20240711
  Transmission Date: 20241017
  Serious: No
  Sender: DR REDDYS
  Company Number: US-E2BLSMVVAL-SPO/USA/24/0009710

PATIENT
  Age: 34 Year

DRUGS (1)
  1. ACCUTANE [Suspect]
     Active Substance: ISOTRETINOIN
     Indication: Product used for unknown indication
     Route: 065
     Dates: start: 20120301, end: 20120801

REACTIONS (5)
  - Chapped lips [Unknown]
  - Dry skin [Unknown]
  - Photosensitivity reaction [Unknown]
  - Sunburn [Unknown]
  - Rash [Unknown]

NARRATIVE: CASE EVENT DATE: 20120501
